FAERS Safety Report 9713459 (Version 1)
Quarter: 2013Q4

REPORT INFORMATION
  Report Type: Spontaneous
  Country: CA (occurrence: CA)
  Receive Date: 20131126
  Receipt Date: 20131126
  Transmission Date: 20140711
  Serious: Yes (Hospitalization)
  Sender: FDA-Public Use
  Company Number: CA-GILEAD-2013-0088458

PATIENT
  Age: 61 Year
  Sex: Female
  Weight: 106 kg

DRUGS (17)
  1. AMBRISENTAN [Suspect]
     Indication: PRODUCT USED FOR UNKNOWN INDICATION
     Dosage: 5MG PER DAY
     Route: 048
  2. ATORVASTATIN CALCIUM [Concomitant]
  3. BISACODYL [Concomitant]
  4. CLOBETASOL PROPIONATE [Concomitant]
  5. DIGOXIN [Concomitant]
  6. DOCUSATE SODIUM [Concomitant]
  7. FUROSEMIDE [Concomitant]
  8. GABAPENTIN [Concomitant]
  9. GEMFIBROZIL [Concomitant]
  10. LANSOPRAZOLE [Concomitant]
  11. LANTUS [Concomitant]
     Route: 058
  12. NOVORAPID [Concomitant]
  13. SILDENAFIL [Concomitant]
  14. SLOW K [Concomitant]
  15. SPIRIVA [Concomitant]
  16. WARFARIN [Concomitant]
  17. ZAROXOLYN [Concomitant]

REACTIONS (3)
  - Weight increased [Recovered/Resolved]
  - Dyspnoea [Recovered/Resolved]
  - Oedema [Recovered/Resolved]
